FAERS Safety Report 12750788 (Version 1)
Quarter: 2016Q3

REPORT INFORMATION
  Report Type: Spontaneous
  Country: DE (occurrence: JP)
  Receive Date: 20160916
  Receipt Date: 20160916
  Transmission Date: 20161109
  Serious: Yes (Other)
  Sender: FDA-Public Use
  Company Number: JP-FRI-1000087513

PATIENT
  Sex: Female
  Weight: 49 kg

DRUGS (4)
  1. MEMANTINE. [Suspect]
     Active Substance: MEMANTINE
     Dosage: 10 MG
     Route: 048
     Dates: start: 20160511, end: 20160511
  2. YOKUKANSAN [Concomitant]
     Active Substance: HERBALS
     Dates: start: 20150616
  3. MEMANTINE. [Suspect]
     Active Substance: MEMANTINE
     Indication: DEMENTIA ALZHEIMER^S TYPE
     Dosage: 5 MG
     Route: 048
     Dates: start: 20160427, end: 20160510
  4. DONEPEZIL. [Concomitant]
     Active Substance: DONEPEZIL
     Dates: start: 20150526

REACTIONS (3)
  - Dropped head syndrome [Recovered/Resolved with Sequelae]
  - Face oedema [Unknown]
  - Gait disturbance [Unknown]

NARRATIVE: CASE EVENT DATE: 20160507
